FAERS Safety Report 24134556 (Version 3)
Quarter: 2024Q3

REPORT INFORMATION
  Report Type: Spontaneous
  Country: US (occurrence: US)
  Receive Date: 20240725
  Receipt Date: 20240807
  Transmission Date: 20241017
  Serious: Yes (Life-Threatening, Hospitalization, Other)
  Sender: GLAXOSMITHKLINE
  Company Number: US-GSK-US2024090190

PATIENT

DRUGS (1)
  1. NUCALA [Suspect]
     Active Substance: MEPOLIZUMAB
     Indication: Hypereosinophilic syndrome
     Dosage: 300 MG, Q4W
     Dates: start: 202108

REACTIONS (3)
  - Fungal infection [Recovering/Resolving]
  - Mental status changes [Recovering/Resolving]
  - Brain abscess [Recovering/Resolving]

NARRATIVE: CASE EVENT DATE: 20240516
